FAERS Safety Report 5110302-1 (Version None)
Quarter: 2006Q3

REPORT INFORMATION
  Report Type: 
  Country: None (occurrence: None)
  Receive Date: 20060921
  Receipt Date: 20060224
  Transmission Date: 20061208
  Serious: Yes (Other)
  Sender: FDA-Public Use
  Company Number: AU-AVENTIS-200612122GDDC

PATIENT
  Age: 28 Year
  Sex: Female

DRUGS (1)
  1. LANTUS [Suspect]
     Route: 058

REACTIONS (5)
  - DRUG EXPOSURE DURING PREGNANCY [None]
  - NAUSEA [None]
  - PREGNANCY [None]
  - STILLBIRTH [None]
  - VOMITING [None]
